FAERS Safety Report 18578404 (Version 1)
Quarter: 2020Q4

REPORT INFORMATION
  Report Type: Spontaneous
  Country: FR (occurrence: FR)
  Receive Date: 20201204
  Receipt Date: 20201204
  Transmission Date: 20210114
  Serious: Yes (Death, Life-Threatening, Hospitalization)
  Sender: FDA-Public Use
  Company Number: FR-ACCORD-209843

PATIENT
  Age: 70 Year
  Sex: Female

DRUGS (19)
  1. IFOSFAMIDE. [Suspect]
     Active Substance: IFOSFAMIDE
     Indication: CHEMOTHERAPY
     Route: 042
     Dates: start: 2008, end: 2008
  2. DOXORUBICIN [Suspect]
     Active Substance: DOXORUBICIN
     Indication: CHEMOTHERAPY
     Route: 042
     Dates: start: 2006, end: 2006
  3. LEVOTHYROX [Concomitant]
     Active Substance: LEVOTHYROXINE
     Route: 048
  4. MEDIATOR [Suspect]
     Active Substance: BENFLUOREX
     Indication: WEIGHT INCREASED
     Route: 048
  5. SPECIAFOLDINE [Concomitant]
     Active Substance: FOLIC ACID
     Dosage: STRENGTH-5 MG
     Route: 048
  6. MIMPARA [Concomitant]
     Active Substance: CINACALCET HYDROCHLORIDE
     Dosage: STRENGTH-30 MG,
     Route: 048
  7. INEXIUM [Concomitant]
     Active Substance: ESOMEPRAZOLE
     Dosage: STRENGTH- 40 MG
     Route: 048
  8. CYCLOPHOSPHAMIDE. [Suspect]
     Active Substance: CYCLOPHOSPHAMIDE
     Indication: CHEMOTHERAPY
     Route: 042
     Dates: start: 2006, end: 2006
  9. SYMBICORT [Concomitant]
     Active Substance: BUDESONIDE\FORMOTEROL FUMARATE DIHYDRATE
     Route: 055
  10. BISOPROLOL [Concomitant]
     Active Substance: BISOPROLOL
     Route: 048
  11. VINCRISTINE [Suspect]
     Active Substance: VINCRISTINE
     Indication: CHEMOTHERAPY
     Route: 042
     Dates: start: 2006, end: 2006
  12. RITUXIMAB. [Suspect]
     Active Substance: RITUXIMAB
     Indication: CHEMOTHERAPY
     Route: 042
     Dates: start: 2006, end: 2006
  13. NASONEX [Concomitant]
     Active Substance: MOMETASONE FUROATE
     Dosage: STRENGTH-50 UG/ DOSE,
     Route: 045
  14. TRIATEC [RAMIPRIL] [Concomitant]
     Active Substance: RAMIPRIL
     Dosage: STRENGTH-10 MG, SCORED TABLET
     Route: 048
  15. LASILIX [Concomitant]
     Active Substance: FUROSEMIDE
     Dosage: STRENGTH-40 MG, SCORED TABLET
     Route: 048
  16. VINORELBINE [Suspect]
     Active Substance: VINORELBINE TARTRATE
     Indication: CHEMOTHERAPY
     Route: 042
     Dates: start: 2008, end: 2008
  17. ETOPOSIDE. [Suspect]
     Active Substance: ETOPOSIDE
     Indication: CHEMOTHERAPY
     Route: 042
     Dates: start: 2008, end: 2008
  18. MITOGUAZONE [Suspect]
     Active Substance: MITOGUAZONE
     Indication: CHEMOTHERAPY
     Route: 042
     Dates: start: 2008, end: 2008
  19. ZYMADUO [Concomitant]
     Dosage: STRENGTH-80 000 UI, ORAL SOLUTION IN AMPOULE
     Route: 048

REACTIONS (1)
  - Pulmonary arterial hypertension [Fatal]

NARRATIVE: CASE EVENT DATE: 2018
